FAERS Safety Report 20889308 (Version 3)
Quarter: 2023Q1

REPORT INFORMATION
  Report Type: Spontaneous
  Country: ES (occurrence: ES)
  Receive Date: 20220530
  Receipt Date: 20230301
  Transmission Date: 20230418
  Serious: Yes (Hospitalization, Other)
  Sender: FDA-Public Use
  Company Number: ES-SA-SAC20220404001381

PATIENT
  Age: 79 Year
  Sex: Male
  Weight: 80 kg

DRUGS (35)
  1. IRINOTECAN [Suspect]
     Active Substance: IRINOTECAN
     Indication: Colon cancer
     Dosage: 144 MILLIGRAM/SQ. METER (2 WEEK)
     Route: 042
     Dates: start: 20220228, end: 20220422
  2. IRINOTECAN [Suspect]
     Active Substance: IRINOTECAN
     Dosage: 144 MILLIGRAM/SQ. METER (2 WEEK)
     Route: 042
     Dates: start: 20220318, end: 20220401
  3. IRINOTECAN [Suspect]
     Active Substance: IRINOTECAN
     Dosage: 108 MG/M2, 2 WEEK
     Route: 042
     Dates: start: 20220228
  4. IRINOTECAN [Suspect]
     Active Substance: IRINOTECAN
     Dosage: 108 MG/M2, 2 WEEK
     Route: 042
     Dates: start: 20220318, end: 20220401
  5. IRINOTECAN [Suspect]
     Active Substance: IRINOTECAN
     Dosage: 108 MG/M2, 2 WEEK
     Route: 042
     Dates: start: 20220517
  6. AFLIBERCEPT [Suspect]
     Active Substance: AFLIBERCEPT
     Indication: Colon cancer
     Dosage: 4 MILLIGRAM/KILOGRAM (2 WEEK)
     Route: 042
     Dates: start: 20220228, end: 20220401
  7. AFLIBERCEPT [Suspect]
     Active Substance: AFLIBERCEPT
     Dosage: 4 MILLIGRAM/KILOGRAM (2 WEEK)
     Route: 042
     Dates: start: 20220318, end: 20220401
  8. AFLIBERCEPT [Suspect]
     Active Substance: AFLIBERCEPT
     Dosage: 2 MILLIGRAM/KILOGRAM, 2 WEEK
     Route: 042
     Dates: start: 20220228
  9. AFLIBERCEPT [Suspect]
     Active Substance: AFLIBERCEPT
     Dosage: 2 MILLIGRAM/KILOGRAM, 2 WEEK
     Route: 042
     Dates: start: 20220318, end: 20220401
  10. AFLIBERCEPT [Suspect]
     Active Substance: AFLIBERCEPT
     Dosage: 2 MILLIGRAM/KILOGRAM, 2 WEEK
     Route: 042
     Dates: start: 20220517, end: 20220601
  11. LEUCOVORIN CALCIUM [Suspect]
     Active Substance: LEUCOVORIN CALCIUM
     Indication: Colon cancer
     Dosage: 788 MILLIGRAM (2 WEEK)
     Route: 042
     Dates: start: 20220228, end: 20220401
  12. FLUOROURACIL [Suspect]
     Active Substance: FLUOROURACIL
     Indication: Colon cancer
     Dosage: 630.4 MILLIGRAM, 2 WEEK
     Route: 042
     Dates: start: 20220228, end: 20220401
  13. FLUOROURACIL [Suspect]
     Active Substance: FLUOROURACIL
     Dosage: 3782.4 MILLIGRAM, 2 WEEK
     Route: 042
     Dates: start: 20220228, end: 20220422
  14. FLUOROURACIL [Suspect]
     Active Substance: FLUOROURACIL
     Dosage: 630.4 MILLIGRAM, 2 WEEK
     Route: 042
     Dates: start: 20220228
  15. FLUOROURACIL [Suspect]
     Active Substance: FLUOROURACIL
     Dosage: 3782.4 MILLIGRAM, 2 WEEK
     Route: 042
     Dates: start: 20220318, end: 20220401
  16. FLUOROURACIL [Suspect]
     Active Substance: FLUOROURACIL
     Dosage: 1440 MG/M2, 2 WEEK
     Route: 042
     Dates: start: 20220228
  17. FLUOROURACIL [Suspect]
     Active Substance: FLUOROURACIL
     Dosage: 240 MG/M2, 2 WEEK
     Route: 042
     Dates: start: 20220228
  18. FLUOROURACIL [Suspect]
     Active Substance: FLUOROURACIL
     Dosage: 1440 MG/M2, 2 WEEK
     Route: 042
     Dates: start: 20220318, end: 20220401
  19. FLUOROURACIL [Suspect]
     Active Substance: FLUOROURACIL
     Dosage: 240 MG/M2, 2 WEEK
     Route: 042
     Dates: start: 20220318, end: 20220401
  20. FLUOROURACIL [Suspect]
     Active Substance: FLUOROURACIL
     Dosage: 1440 MG/M2, 2 WEEK
     Route: 042
     Dates: start: 20220517
  21. FLUOROURACIL [Suspect]
     Active Substance: FLUOROURACIL
     Dosage: 240 MG/M2, 2 WEEK
     Route: 042
     Dates: start: 20220517
  22. LEUCOVORIN [Suspect]
     Active Substance: LEUCOVORIN
     Indication: Colon cancer
     Dosage: 788 MILLIGRAM, 2 WEEK
     Route: 042
     Dates: start: 20220228, end: 20220422
  23. LEUCOVORIN [Suspect]
     Active Substance: LEUCOVORIN
     Dosage: 788 MILLIGRAM, 2 WEEK
     Route: 042
     Dates: start: 20220318, end: 20220401
  24. LEUCOVORIN [Suspect]
     Active Substance: LEUCOVORIN
     Dosage: 752 MG/M2, 2 WEEK
     Route: 042
     Dates: start: 20220228
  25. LEUCOVORIN [Suspect]
     Active Substance: LEUCOVORIN
     Dosage: 752 MG/M2, 2 WEEK
     Route: 042
     Dates: start: 20220318, end: 20220401
  26. LEUCOVORIN [Suspect]
     Active Substance: LEUCOVORIN
     Dosage: 752 MG/M2, 2 WEEK
     Route: 042
     Dates: start: 20220517
  27. ASPIRIN [Concomitant]
     Active Substance: ASPIRIN
     Indication: Prophylaxis
     Dosage: 100 MILLIGRAM
     Route: 048
     Dates: start: 20190101
  28. ENALAPRIL [Concomitant]
     Active Substance: ENALAPRIL
     Indication: Hypertension
     Dosage: 20 MILLIGRAM
     Route: 048
     Dates: start: 20190101
  29. INSULIN GLULISINE [Concomitant]
     Active Substance: INSULIN GLULISINE
     Indication: Product used for unknown indication
     Dosage: 100 DOSAGE FORM (100 IU/ML)
     Route: 065
     Dates: start: 20220331
  30. METOCLOPRAMIDE [Concomitant]
     Active Substance: METOCLOPRAMIDE
     Indication: Product used for unknown indication
     Dosage: 30 MILLIGRAM
     Route: 065
     Dates: start: 20220331
  31. METFORMIN [Concomitant]
     Active Substance: METFORMIN HYDROCHLORIDE
     Indication: Diabetes mellitus
     Dosage: 850 MILLIGRAM
     Route: 048
     Dates: start: 20120101
  32. ACETAMINOPHEN [Concomitant]
     Active Substance: ACETAMINOPHEN
     Indication: Product used for unknown indication
     Dosage: 3 GRAM
     Route: 065
     Dates: start: 20220331
  33. PANTOPRAZOLE [Concomitant]
     Active Substance: PANTOPRAZOLE
     Indication: Product used for unknown indication
     Dosage: 40 MILLIGRAM
     Route: 065
     Dates: start: 20220331
  34. SIMVASTATIN [Concomitant]
     Active Substance: SIMVASTATIN
     Indication: Dyslipidaemia
     Dosage: 20 MILLIGRAM
     Route: 048
     Dates: start: 20170101
  35. TRAMADOL [Concomitant]
     Active Substance: TRAMADOL
     Indication: Product used for unknown indication
     Dosage: 300 MILLIGRAM
     Route: 065
     Dates: start: 20220331

REACTIONS (2)
  - Febrile neutropenia [Recovered/Resolved]
  - Diarrhoea [Recovered/Resolved]

NARRATIVE: CASE EVENT DATE: 20220306
